FAERS Safety Report 7233358-9 (Version None)
Quarter: 2011Q1

REPORT INFORMATION
  Report Type: 
  Country: None (occurrence: None)
  Receive Date: 20110119
  Receipt Date: 20110106
  Transmission Date: 20110831
  Serious: Yes (Hospitalization)
  Sender: FDA-Public Use
  Company Number: US-ROCHE-752301

PATIENT
  Sex: Female
  Weight: 68.9 kg

DRUGS (2)
  1. GEMCITABINE [Suspect]
     Dosage: DOSING FREQUENCY : DAY 1, 15 AND 29
     Route: 042
     Dates: start: 20100830, end: 20100927
  2. BEVACIZUMAB [Suspect]
     Dosage: DOSING FREQUENCY : DAY 1, 15, 29 AND 43
     Route: 042
     Dates: start: 20100830, end: 20101011

REACTIONS (4)
  - COLITIS ISCHAEMIC [None]
  - DEHYDRATION [None]
  - ABDOMINAL PAIN [None]
  - MALNUTRITION [None]
